FAERS Safety Report 9767927 (Version 1)
Quarter: 2013Q4

REPORT INFORMATION
  Report Type: Spontaneous
  Country: FR (occurrence: FR)
  Receive Date: 20131217
  Receipt Date: 20131217
  Transmission Date: 20140711
  Serious: Yes (Other)
  Sender: FDA-Public Use
  Company Number: FR-TEVA-448944ISR

PATIENT
  Age: 20 Year
  Sex: Female

DRUGS (1)
  1. LEELOO [Suspect]
     Route: 048
     Dates: start: 2013

REACTIONS (3)
  - Pregnancy on oral contraceptive [Recovered/Resolved]
  - Drug ineffective [Unknown]
  - Abortion induced [Unknown]
